FAERS Safety Report 13325431 (Version 1)
Quarter: 2017Q1

REPORT INFORMATION
  Report Type: Spontaneous
  Country: US (occurrence: US)
  Receive Date: 20170310
  Receipt Date: 20170310
  Transmission Date: 20170428
  Serious: No
  Sender: FDA-Public Use
  Company Number: US-PERRIGO-16US018781

PATIENT
  Age: 80 Year
  Sex: Male
  Weight: 64.85 kg

DRUGS (2)
  1. PROCARDIA [Concomitant]
     Active Substance: NIFEDIPINE
     Indication: HYPERTENSION
     Dosage: UNK
     Route: 065
  2. TESTOSTERONE CYPIONATE. [Suspect]
     Active Substance: TESTOSTERONE CYPIONATE
     Indication: BLOOD TESTOSTERONE DECREASED
     Dosage: 120 MG, EVERY TWO WEEKS
     Route: 030
     Dates: start: 201604

REACTIONS (6)
  - Fatigue [Unknown]
  - Loss of libido [Unknown]
  - Drug administered at inappropriate site [Unknown]
  - Nipple pain [Unknown]
  - Disturbance in attention [Unknown]
  - Drug ineffective [Unknown]

NARRATIVE: CASE EVENT DATE: 201605
